FAERS Safety Report 16878116 (Version 1)
Quarter: 2019Q4

REPORT INFORMATION
  Report Type: Spontaneous
  Country: US (occurrence: US)
  Receive Date: 20191002
  Receipt Date: 20191002
  Transmission Date: 20200122
  Serious: No
  Sender: FDA-Public Use
  Company Number: US-ELI_LILLY_AND_COMPANY-US201909007868

PATIENT
  Sex: Female

DRUGS (4)
  1. EMGALITY [Suspect]
     Active Substance: GALCANEZUMAB-GNLM
     Indication: MIGRAINE
     Dosage: UNK, UNKNOWN
     Route: 065
  2. VITAMIN D3 [Concomitant]
     Active Substance: CHOLECALCIFEROL
     Indication: SUPPLEMENTATION THERAPY
     Dosage: UNK, UNKNOWN
     Route: 065
  3. VITAMIN B12 [VITAMIN B12 NOS] [Concomitant]
     Active Substance: CYANOCOBALAMIN
     Indication: SUPPLEMENTATION THERAPY
     Dosage: UNK, UNKNOWN
     Route: 065
  4. STADOL [Concomitant]
     Active Substance: BUTORPHANOL TARTRATE
     Indication: MIGRAINE
     Dosage: UNK, PRN
     Route: 065

REACTIONS (4)
  - Migraine [Not Recovered/Not Resolved]
  - Wrong schedule [Unknown]
  - Insomnia [Not Recovered/Not Resolved]
  - Scar [Unknown]

NARRATIVE: CASE EVENT DATE: 20190915
